FAERS Safety Report 8334318-7 (Version None)
Quarter: 2012Q2

REPORT INFORMATION
  Report Type: 
  Country: None (occurrence: None)
  Receive Date: 20120503
  Receipt Date: 20120426
  Transmission Date: 20120825
  Serious: Yes (Hospitalization)
  Sender: FDA-Public Use
  Company Number: US-ASTRAZENECA-2011SE24060

PATIENT
  Age: 56 Year
  Sex: Female

DRUGS (3)
  1. VIMOVO [Suspect]
     Route: 048
  2. NEXIUM [Suspect]
     Route: 048
  3. CELEBREX [Concomitant]

REACTIONS (8)
  - ROAD TRAFFIC ACCIDENT [None]
  - GASTROOESOPHAGEAL REFLUX DISEASE [None]
  - TRIGEMINAL NEURALGIA [None]
  - OSTEOARTHRITIS [None]
  - HIATUS HERNIA [None]
  - DRUG INTOLERANCE [None]
  - CHONDROPATHY [None]
  - WRONG DRUG ADMINISTERED [None]
